FAERS Safety Report 21085628 (Version 1)
Quarter: 2022Q3

REPORT INFORMATION
  Report Type: Spontaneous
  Country: GB (occurrence: GB)
  Receive Date: 20220715
  Receipt Date: 20220715
  Transmission Date: 20221027
  Serious: Yes (Other)
  Sender: FDA-Public Use
  Company Number: GB-HOSPIRA-3031683

PATIENT
  Age: 40 Year
  Sex: Female

DRUGS (3)
  1. PEMETREXED [Suspect]
     Active Substance: PEMETREXED
     Indication: Lung adenocarcinoma
     Dosage: UNK (MAINTENANCE DOSE)
     Route: 065
     Dates: start: 20130101
  2. CISPLATIN [Suspect]
     Active Substance: CISPLATIN
     Indication: Lung adenocarcinoma
     Dosage: UNK
     Route: 065
     Dates: start: 20130101
  3. DEXAMETHASONE [Suspect]
     Active Substance: DEXAMETHASONE
     Indication: Lung adenocarcinoma
     Dosage: UNK
     Route: 065

REACTIONS (8)
  - Headache [Unknown]
  - Depressed mood [Unknown]
  - Lung adenocarcinoma [Unknown]
  - Disease progression [Unknown]
  - Rash [Unknown]
  - Mobility decreased [Unknown]
  - Tearfulness [Unknown]
  - Weight increased [Unknown]

NARRATIVE: CASE EVENT DATE: 20130101
